FAERS Safety Report 23266674 (Version 1)
Quarter: 2023Q4

REPORT INFORMATION
  Report Type: Report from Study
  Country: CA (occurrence: CA)
  Receive Date: 20231206
  Receipt Date: 20231206
  Transmission Date: 20240109
  Serious: Yes (Death)
  Sender: FDA-Public Use
  Company Number: CA-002147023-NVSC2023CA075053

PATIENT
  Age: 68 Year
  Sex: Female

DRUGS (1)
  1. PIRFENIDONE [Suspect]
     Active Substance: PIRFENIDONE
     Indication: Pulmonary fibrosis
     Dosage: 267 MG
     Route: 048
     Dates: start: 20221007

REACTIONS (1)
  - Death [Fatal]

NARRATIVE: CASE EVENT DATE: 20230329
